FAERS Safety Report 8304664-1 (Version None)
Quarter: 2012Q2

REPORT INFORMATION
  Report Type: 
  Country: None (occurrence: None)
  Receive Date: 20120423
  Receipt Date: 20120417
  Transmission Date: 20120825
  Serious: Yes (Life-Threatening)
  Sender: FDA-Public Use
  Company Number: GR-BAYER-2012-037819

PATIENT
  Age: 23 Year
  Sex: Male

DRUGS (1)
  1. ASPIRIN [Suspect]
     Dosage: 500 MG, UNK
     Route: 048

REACTIONS (12)
  - SPLENIC RUPTURE [None]
  - TACHYPNOEA [None]
  - SPLENIC HAEMATOMA [None]
  - HYPOTENSION [None]
  - LYMPHOCYTOSIS [None]
  - PALLOR [None]
  - SYNCOPE [None]
  - SHOCK HAEMORRHAGIC [None]
  - TACHYCARDIA [None]
  - PYREXIA [None]
  - ABDOMINAL PAIN [None]
  - OROPHARYNGEAL PAIN [None]
